FAERS Safety Report 11055920 (Version 1)
Quarter: 2015Q2

REPORT INFORMATION
  Report Type: Spontaneous
  Country: US (occurrence: None)
  Receive Date: 20150421
  Receipt Date: 20150421
  Transmission Date: 20150821
  Serious: No
  Sender: FDA-Public Use
  Company Number: None

PATIENT
  Age: 70 Year
  Sex: Female

DRUGS (12)
  1. K-DUR [Concomitant]
     Active Substance: POTASSIUM CHLORIDE
  2. PREDNISONE. [Concomitant]
     Active Substance: PREDNISONE
  3. TARCEVA [Suspect]
     Active Substance: ERLOTINIB HYDROCHLORIDE
     Indication: NEOPLASM MALIGNANT
     Dosage: 1 TABLET QD ORAL
     Route: 048
     Dates: start: 20150418, end: 20150420
  4. OXYCODONE [Concomitant]
     Active Substance: OXYCODONE
  5. GLIPIZIDE. [Concomitant]
     Active Substance: GLIPIZIDE
  6. NEXIUM [Concomitant]
     Active Substance: ESOMEPRAZOLE MAGNESIUM
  7. PROZAC [Concomitant]
     Active Substance: FLUOXETINE HYDROCHLORIDE
  8. CYCLOSPORINE. [Concomitant]
     Active Substance: CYCLOSPORINE
  9. CELEXA [Concomitant]
     Active Substance: CITALOPRAM HYDROBROMIDE
  10. DILTIAZEM [Concomitant]
     Active Substance: DILTIAZEM
  11. METOPROLOL [Concomitant]
     Active Substance: METOPROLOL
  12. WARFARIN [Concomitant]
     Active Substance: WARFARIN

REACTIONS (1)
  - Nausea [None]

NARRATIVE: CASE EVENT DATE: 20150420
